FAERS Safety Report 4892555-8 (Version None)
Quarter: 2006Q1

REPORT INFORMATION
  Report Type: 
  Country: None (occurrence: None)
  Receive Date: 20060126
  Receipt Date: 20060116
  Transmission Date: 20060701
  Serious: Yes (Other)
  Sender: FDA-Public Use
  Company Number: PHBS2006BR00950

PATIENT
  Age: 27 Year
  Sex: Male
  Weight: 70 kg

DRUGS (7)
  1. TEGRETOL [Suspect]
     Indication: EPILEPSY
     Dates: start: 19940101
  2. TEGRETOL [Suspect]
     Dates: start: 19980101
  3. TEGRETOL [Suspect]
     Dates: start: 20000101
  4. TEGRETOL [Suspect]
     Dosage: 400 MG, BID
     Route: 048
     Dates: start: 20050101
  5. DEPAKENE [Concomitant]
     Dosage: 250 MG
     Dates: end: 20050101
  6. GARDENAL [Concomitant]
     Indication: EPILEPSY
     Dosage: 100 MG, BID
     Route: 048
  7. RIVOTRIL [Concomitant]
     Dosage: 1 MG, BID
     Route: 048
     Dates: start: 20040101

REACTIONS (2)
  - AMNESIA [None]
  - ERECTILE DYSFUNCTION [None]
